FAERS Safety Report 25937107 (Version 1)
Quarter: 2025Q4

REPORT INFORMATION
  Report Type: Spontaneous
  Country: A1 (occurrence: A1)
  Receive Date: 20251017
  Receipt Date: 20251017
  Transmission Date: 20260118
  Serious: No
  Sender: ARMSTRONG PHARMACEUTICALS, INC.
  Company Number: A1-Armstrong Pharmaceuticals, Inc.-2186788

PATIENT
  Age: 46 Year
  Sex: Female
  Weight: 58.182 kg

DRUGS (1)
  1. PRIMATENE MIST [Suspect]
     Active Substance: EPINEPHRINE
     Indication: Wheezing

REACTIONS (1)
  - Drug ineffective [Unknown]
